FAERS Safety Report 10228896 (Version 1)
Quarter: 2014Q2

REPORT INFORMATION
  Report Type: Spontaneous
  Country: NO (occurrence: NO)
  Receive Date: 20140610
  Receipt Date: 20140610
  Transmission Date: 20141212
  Serious: Yes (Other)
  Sender: FDA-Public Use
  Company Number: NO-BAYER-2014-081654

PATIENT
  Sex: Female

DRUGS (6)
  1. ACETYLSALICYLIC ACID (} 100 MG) [Suspect]
     Dosage: 75 MG, UNK
  2. GLYCOPYRRONIUM BROMIDE [Suspect]
     Dosage: 1 DF, QD
     Dates: start: 20130822
  3. VENTOLINE [Concomitant]
  4. SPIRIVA [Concomitant]
  5. FURIX [Concomitant]
  6. SERETIDE [Concomitant]

REACTIONS (7)
  - Wound [Unknown]
  - Epistaxis [Recovering/Resolving]
  - Dyspnoea [Unknown]
  - Contusion [Recovered/Resolved]
  - Dry mouth [Unknown]
  - Peripheral swelling [Unknown]
  - Cardiac failure [Unknown]
